FAERS Safety Report 11690897 (Version 1)
Quarter: 2015Q4

REPORT INFORMATION
  Report Type: Spontaneous
  Country: IT (occurrence: IT)
  Receive Date: 20151102
  Receipt Date: 20151102
  Transmission Date: 20160304
  Serious: Yes (Hospitalization)
  Sender: FDA-Public Use
  Company Number: IT-PFIZER INC-2015367084

PATIENT
  Age: 46 Year
  Sex: Female

DRUGS (6)
  1. AULIN [Suspect]
     Active Substance: NIMESULIDE
     Indication: HEADACHE
     Dosage: 1 DF, DAILY
     Route: 048
     Dates: start: 20150715, end: 20151018
  2. LAMICTAL [Concomitant]
     Active Substance: LAMOTRIGINE
  3. VATRAN [Concomitant]
     Active Substance: DIAZEPAM
  4. DEPAKIN [Concomitant]
     Active Substance: VALPROATE SODIUM
  5. RELPAX [Suspect]
     Active Substance: ELETRIPTAN HYDROBROMIDE
     Indication: HEADACHE
     Dosage: 2 DF, DAILY
     Route: 048
     Dates: start: 20150715, end: 20151018
  6. IMIGRAN /01044801/ [Suspect]
     Active Substance: SUMATRIPTAN
     Indication: HEADACHE
     Dosage: 2 DF, DAILY
     Route: 048
     Dates: start: 20150715, end: 20151018

REACTIONS (4)
  - Abdominal pain upper [Recovering/Resolving]
  - Migraine [Recovering/Resolving]
  - Condition aggravated [Recovering/Resolving]
  - Drug abuse [Recovering/Resolving]

NARRATIVE: CASE EVENT DATE: 20151019
